FAERS Safety Report 9399997 (Version 3)
Quarter: 2013Q3

REPORT INFORMATION
  Report Type: Spontaneous
  Country: FR (occurrence: FR)
  Receive Date: 20130715
  Receipt Date: 20130806
  Transmission Date: 20140515
  Serious: Yes (Hospitalization)
  Sender: FDA-Public Use
  Company Number: FR-JNJFOC-20130703539

PATIENT
  Age: 25 Year
  Sex: Male

DRUGS (2)
  1. XEPLION [Suspect]
     Indication: DELUSIONAL DISORDER, UNSPECIFIED TYPE
     Dosage: DAY 1
     Route: 030
     Dates: start: 20130527
  2. XEPLION [Suspect]
     Indication: DELUSIONAL DISORDER, UNSPECIFIED TYPE
     Dosage: DAY 8
     Route: 030
     Dates: start: 20130603

REACTIONS (10)
  - Psychomotor retardation [Not Recovered/Not Resolved]
  - Feeling abnormal [Unknown]
  - Speech disorder [Unknown]
  - Tachycardia [Unknown]
  - Indifference [Not Recovered/Not Resolved]
  - Sluggishness [Not Recovered/Not Resolved]
  - Drooling [Not Recovered/Not Resolved]
  - Heart rate increased [Not Recovered/Not Resolved]
  - Confusional state [Not Recovered/Not Resolved]
  - Incorrect dose administered [Unknown]
